FAERS Safety Report 6699244-8 (Version None)
Quarter: 2010Q2

REPORT INFORMATION
  Report Type: 
  Country: None (occurrence: None)
  Receive Date: 20100427
  Receipt Date: 20100413
  Transmission Date: 20101027
  Serious: Yes (Hospitalization, Other)
  Sender: FDA-Public Use
  Company Number: US-ELI_LILLY_AND_COMPANY-US201002005426

PATIENT
  Sex: Female

DRUGS (16)
  1. FORTEO [Suspect]
     Indication: OSTEOPOROSIS
     Dosage: 20 UG, DAILY (1/D)
     Route: 065
     Dates: start: 20090501
  2. FORTEO [Suspect]
     Dosage: 20 UG, DAILY (1/D)
  3. FORTEO [Suspect]
     Dosage: 20 UG, DAILY (1/D)
  4. FISH OIL [Concomitant]
  5. FISH OIL [Concomitant]
     Dosage: 1000 MG, DAILY (1/D)
  6. VITAMIN B-12 [Concomitant]
     Dosage: 300 UG, DAILY (1/D)
  7. VITAMIN B-12 [Concomitant]
     Dosage: 500 UG, DAILY (1/D)
  8. VITAMIN D [Concomitant]
     Dosage: 2000 IU, DAILY (1/D)
  9. ASPIRIN [Concomitant]
     Dosage: 81 MG, DAILY (1/D)
  10. FENOFIBRATE [Concomitant]
     Dosage: 67 MG, DAILY (1/D)
  11. PAROXETINE HCL [Concomitant]
     Dosage: 20 MG, DAILY (1/D)
  12. AMLODIPINE [Concomitant]
     Dosage: 5 MG, DAILY (1/D)
  13. LORAZEPAM [Concomitant]
     Dosage: 1 MG, EACH EVENING
  14. ALPRAZOLAM [Concomitant]
     Dosage: 1 MG, EACH EVENING
  15. PAXIL [Concomitant]
     Dosage: 20 MG, DAILY (1/D)
  16. CITRACAL + D [Concomitant]
     Dosage: 630 MG, DAILY (1/D)

REACTIONS (9)
  - ARTHRALGIA [None]
  - BONE PAIN [None]
  - FALL [None]
  - HIP FRACTURE [None]
  - JOINT CREPITATION [None]
  - MUSCLE SPASMS [None]
  - OEDEMA PERIPHERAL [None]
  - PAIN IN EXTREMITY [None]
  - PRURITUS [None]
